FAERS Safety Report 10919820 (Version 2)
Quarter: 2015Q2

REPORT INFORMATION
  Report Type: Spontaneous
  Country: FR (occurrence: FR)
  Receive Date: 20150317
  Receipt Date: 20150504
  Transmission Date: 20150821
  Serious: Yes (Hospitalization)
  Sender: FDA-Public Use
  Company Number: FR-EMD SERONO-8015442

PATIENT
  Age: 36 Year
  Sex: Female
  Weight: 91 kg

DRUGS (3)
  1. GONAL-F [Concomitant]
     Active Substance: FOLLITROPIN
     Indication: IN VITRO FERTILISATION
     Route: 058
     Dates: start: 20150222, end: 20150302
  2. CETROTIDE [Suspect]
     Active Substance: CETRORELIX ACETATE
     Indication: IN VITRO FERTILISATION
     Dosage: 0.25 (UNIT UNSPECIFIED) DAILY
     Route: 058
     Dates: start: 20150227, end: 20150302
  3. DECAPEPTYL [Concomitant]
     Active Substance: TRIPTORELIN ACETATE
     Indication: OVULATION DISORDER
     Dosage: DOSE: 2 VIALS

REACTIONS (6)
  - Crying [Unknown]
  - Muscular weakness [Recovered/Resolved]
  - Urine abnormality [Unknown]
  - Hypotonia [Recovered/Resolved]
  - Fatigue [Recovered/Resolved]
  - Somnolence [Recovered/Resolved]

NARRATIVE: CASE EVENT DATE: 20150227
